FAERS Safety Report 5933124-8 (Version None)
Quarter: 2008Q4

REPORT INFORMATION
  Report Type: 
  Country: None (occurrence: None)
  Receive Date: 20081023
  Receipt Date: 20060822
  Transmission Date: 20090506
  Serious: Yes (Other)
  Sender: FDA-Public Use
  Company Number: 2006AL002560

PATIENT
  Sex: Female

DRUGS (3)
  1. FLUOXETINE [Suspect]
     Dosage: PO
     Route: 048
  2. RISPERIDONE [Concomitant]
  3. AMITRIPTYLINE HCL [Concomitant]

REACTIONS (2)
  - BALANCE DISORDER [None]
  - HYPONATRAEMIA [None]
